FAERS Safety Report 4803632-1 (Version None)
Quarter: 2005Q4

REPORT INFORMATION
  Report Type: 
  Country: None (occurrence: None)
  Receive Date: 20051014
  Receipt Date: 20051004
  Transmission Date: 20060501
  Serious: Yes (Life-Threatening, Hospitalization, Disabling)
  Sender: FDA-Public Use
  Company Number: 2005073597

PATIENT
  Age: 40 Year
  Sex: Female
  Weight: 65 kg

DRUGS (2)
  1. NASANYL [Suspect]
     Indication: ENDOMETRIOSIS
     Dosage: 400 MCG (200 MCG , TWICE A DAY), NASAL
     Route: 045
     Dates: start: 20050418, end: 20050422
  2. NASANYL [Suspect]
     Indication: UTERINE LEIOMYOMA
     Dosage: 400 MCG (200 MCG , TWICE A DAY), NASAL
     Route: 045
     Dates: start: 20050418, end: 20050422

REACTIONS (5)
  - CEREBRAL INFARCTION [None]
  - DYSLALIA [None]
  - HEMIPLEGIA [None]
  - ILLUSION [None]
  - SYNCOPE [None]
